FAERS Safety Report 8281950-5 (Version None)
Quarter: 2012Q2

REPORT INFORMATION
  Report Type: 
  Country: None (occurrence: None)
  Receive Date: 20120413
  Receipt Date: 20120410
  Transmission Date: 20120825
  Serious: Yes (Other)
  Sender: FDA-Public Use
  Company Number: US-PFIZER INC-2012043780

PATIENT
  Sex: Female
  Weight: 88.435 kg

DRUGS (5)
  1. UNITHROID [Concomitant]
     Indication: HYPOTHYROIDISM
     Dosage: 125 UG, DAILY
     Dates: start: 19970101
  2. CELEXA [Concomitant]
     Indication: DEPRESSION
  3. CHANTIX [Suspect]
     Dosage: UNK
     Route: 048
     Dates: end: 20120217
  4. CHANTIX [Suspect]
     Indication: SMOKING CESSATION THERAPY
     Dosage: 0.5 MG, DAILY
     Route: 048
     Dates: start: 20111217
  5. CELEXA [Concomitant]
     Indication: ANXIETY
     Dosage: 10 MG, DAILY
     Dates: start: 20060101

REACTIONS (10)
  - RASH [None]
  - SKIN FISSURES [None]
  - ACTIVITIES OF DAILY LIVING IMPAIRED [None]
  - FEELING ABNORMAL [None]
  - AFFECTIVE DISORDER [None]
  - SUICIDAL IDEATION [None]
  - SKIN HAEMORRHAGE [None]
  - ANGER [None]
  - EMOTIONAL DISORDER [None]
  - APATHY [None]
